FAERS Safety Report 25360657 (Version 2)
Quarter: 2025Q3

REPORT INFORMATION
  Report Type: Report from Study
  Country: CA (occurrence: CA)
  Receive Date: 20250527
  Receipt Date: 20250916
  Transmission Date: 20251020
  Serious: Yes (Hospitalization, Other)
  Sender: ABBVIE
  Company Number: CA-ABBVIE-6295962

PATIENT
  Sex: Female

DRUGS (3)
  1. RINVOQ [Suspect]
     Active Substance: UPADACITINIB
     Indication: Crohn^s disease
     Route: 048
  2. RINVOQ [Suspect]
     Active Substance: UPADACITINIB
     Indication: Crohn^s disease
     Route: 048
  3. PREDNISONE [Concomitant]
     Active Substance: PREDNISONE
     Indication: Product used for unknown indication

REACTIONS (1)
  - Intestinal obstruction [Recovering/Resolving]
